FAERS Safety Report 8600709-X (Version None)
Quarter: 2012Q3

REPORT INFORMATION
  Report Type: 
  Country: None (occurrence: None)
  Receive Date: 20120817
  Receipt Date: 20120809
  Transmission Date: 20120928
  Serious: Yes (Hospitalization)
  Sender: FDA-Public Use
  Company Number: DE-UCBSA-063430

PATIENT
  Age: 56 Year
  Sex: Female
  Weight: 80 kg

DRUGS (8)
  1. OXYBUTYNIN CHLORIDE [Concomitant]
     Dates: start: 20120501
  2. RAMIPRIL / HCT [Concomitant]
     Indication: HYPERTENSION
     Dates: start: 20090301
  3. UDC [Concomitant]
     Indication: HEPATOBILIARY DISEASE
     Dates: start: 19980101
  4. RAMIPRIL [Concomitant]
     Indication: HYPERTENSION
     Dates: start: 20090301
  5. CALCIUM/VITAMIN D [Concomitant]
     Indication: OSTEOPOROSIS PROPHYLAXIS
     Dosage: AS USED: 600MG+400IU
  6. CIMZIA [Suspect]
     Indication: RHEUMATOID ARTHRITIS
     Dosage: NO OF DOSES RECEIVED: 66
     Route: 058
     Dates: start: 20110223, end: 20120807
  7. PREDNISOLONE [Concomitant]
     Indication: RHEUMATOID ARTHRITIS
     Dates: start: 20120801
  8. SULFASALAZINE [Concomitant]
     Dates: start: 20100101

REACTIONS (1)
  - LEUKOCYTOSIS [None]
